FAERS Safety Report 9788284 (Version 1)
Quarter: 2013Q4

REPORT INFORMATION
  Report Type: Spontaneous
  Country: US (occurrence: US)
  Receive Date: 20131230
  Receipt Date: 20131230
  Transmission Date: 20140711
  Serious: No
  Sender: FDA-Public Use
  Company Number: US-TEVA-452908USA

PATIENT
  Sex: Male

DRUGS (3)
  1. NUVIGIL [Suspect]
  2. CITALOPRAM [Interacting]
  3. XYREM [Suspect]

REACTIONS (9)
  - Drug interaction [Unknown]
  - Apathy [Unknown]
  - Depression [Unknown]
  - Depression [Unknown]
  - Palpitations [Unknown]
  - Palpitations [Unknown]
  - Asthenia [Unknown]
  - Nausea [Unknown]
  - Anxiety [Unknown]
